FAERS Safety Report 11642680 (Version 2)
Quarter: 2015Q4

REPORT INFORMATION
  Report Type: Spontaneous
  Country: GB (occurrence: GB)
  Receive Date: 20151020
  Receipt Date: 20151021
  Transmission Date: 20160304
  Serious: Yes (Other)
  Sender: FDA-Public Use
  Company Number: GB-ASTRAZENECA-2015SE99442

PATIENT
  Age: 27 Year
  Sex: Male
  Weight: 97 kg

DRUGS (8)
  1. CANDESARTAN [Suspect]
     Active Substance: CANDESARTAN
     Indication: MIGRAINE PROPHYLAXIS
     Route: 048
     Dates: start: 20150824
  2. SODIUM VALPROATE [Concomitant]
     Active Substance: VALPROATE SODIUM
     Dates: start: 20150804, end: 20150814
  3. SUMATRIPTAN. [Concomitant]
     Active Substance: SUMATRIPTAN
     Indication: MIGRAINE
     Dosage: TAKE ONE AT ONSET OF MIGRAINE, ANOTHER IF RECURRENCE
     Dates: start: 20141106
  4. COCODAMOL [Concomitant]
     Active Substance: ACETAMINOPHEN\CODEINE PHOSPHATE
     Dosage: TAKE 1 OR 2 4 TIMES/DAY
     Dates: start: 20150713, end: 20150720
  5. IBUPROFEN. [Concomitant]
     Active Substance: IBUPROFEN
     Dates: start: 20150619, end: 20150805
  6. NAPROXEN. [Concomitant]
     Active Substance: NAPROXEN
     Indication: MIGRAINE
     Dosage: TAKE ONE OR TWO
     Dates: start: 20150922
  7. DOMPERIDONE [Concomitant]
     Active Substance: DOMPERIDONE
     Dosage: TAKE ONE UP TO THREE TIMES DAILY
  8. PARACETAMOL [Concomitant]
     Active Substance: ACETAMINOPHEN
     Dosage: MORNING: 2 TABLETS, NOON: 2 TABLETS, EVENING: 2 TABLETS
     Dates: start: 20150619, end: 20150805

REACTIONS (5)
  - Urine odour abnormal [Recovered/Resolved]
  - Product use issue [Unknown]
  - Orthostatic hypotension [Recovered/Resolved]
  - Urticaria [Recovered/Resolved]
  - Off label use [Unknown]

NARRATIVE: CASE EVENT DATE: 20150916
